FAERS Safety Report 11999307 (Version 1)
Quarter: 2016Q1

REPORT INFORMATION
  Report Type: Spontaneous
  Country: None (occurrence: None)
  Receive Date: 20160203
  Receipt Date: 20160203
  Transmission Date: 20160526
  Serious: No
  Sender: FDA-Public Use
  Company Number: None

PATIENT
  Sex: Female

DRUGS (2)
  1. METFORMIN [Suspect]
     Active Substance: METFORMIN HYDROCHLORIDE
  2. GLIPIZIDE XL [Suspect]
     Active Substance: GLIPIZIDE

REACTIONS (3)
  - Arthralgia [None]
  - Nasopharyngitis [None]
  - Cough [None]
